FAERS Safety Report 9938904 (Version 1)
Quarter: 2014Q1

REPORT INFORMATION
  Report Type: Spontaneous
  Country: US (occurrence: US)
  Receive Date: 20140303
  Receipt Date: 20140303
  Transmission Date: 20141002
  Serious: No
  Sender: FDA-Public Use
  Company Number: US-ABBVIE-13P-163-1036855-00

PATIENT
  Age: 24 Year
  Sex: 0

DRUGS (3)
  1. HUMIRA [Suspect]
     Indication: CROHN^S DISEASE
  2. HUMIRA [Suspect]
     Indication: COLITIS ULCERATIVE
  3. HUMIRA [Suspect]

REACTIONS (5)
  - Hypothyroidism [Unknown]
  - Fatigue [Unknown]
  - Depression [Unknown]
  - Stress [Unknown]
  - Drug ineffective [Unknown]
